FAERS Safety Report 17824072 (Version 1)
Quarter: 2020Q2

REPORT INFORMATION
  Report Type: Spontaneous
  Country: US (occurrence: US)
  Receive Date: 20200526
  Receipt Date: 20200526
  Transmission Date: 20200714
  Serious: No
  Sender: FDA-Public Use
  Company Number: None

PATIENT
  Age: 52 Year
  Sex: Female
  Weight: 63 kg

DRUGS (3)
  1. VALACYCLOVIR [Suspect]
     Active Substance: VALACYCLOVIR HYDROCHLORIDE
     Indication: HERPES VIRUS INFECTION
     Dosage: ?          QUANTITY:30 TABLET(S); AS NEEDED?
     Route: 048
  2. MULTIVITAMINS [Concomitant]
     Active Substance: VITAMINS
  3. BIOTIN [Concomitant]
     Active Substance: BIOTIN

REACTIONS (9)
  - Insurance issue [None]
  - Product complaint [None]
  - Drug intolerance [None]
  - Product colour issue [None]
  - Flank pain [None]
  - Abdominal pain upper [None]
  - Wrong technique in product usage process [None]
  - Burning sensation [None]
  - Inappropriate schedule of product administration [None]

NARRATIVE: CASE EVENT DATE: 20200301
